FAERS Safety Report 8141169-5 (Version None)
Quarter: 2012Q1

REPORT INFORMATION
  Report Type: 
  Country: None (occurrence: None)
  Receive Date: 20120213
  Receipt Date: 20120124
  Transmission Date: 20120608
  Serious: Yes (Disabling)
  Sender: FDA-Public Use
  Company Number: 2012BN000021

PATIENT
  Age: 14 Month
  Sex: Female

DRUGS (7)
  1. ASPIRIN [Concomitant]
  2. HEPARIN [Concomitant]
  3. VINCRISTINE [Concomitant]
  4. MELPHALAN HYDROCHLORIDE [Suspect]
     Indication: RETINOBLASTOMA
     Dosage: 5 MG; ;IART
     Route: 013
  5. SULFATE [Concomitant]
  6. ETOPOSIDE [Concomitant]
  7. CARBOPLATIN [Concomitant]

REACTIONS (9)
  - RETINAL ARTERY OCCLUSION [None]
  - CHOROIDAL DYSTROPHY [None]
  - EYE EXCISION [None]
  - THERAPEUTIC RESPONSE DECREASED [None]
  - EYELID OEDEMA [None]
  - EYELID PTOSIS [None]
  - DISEASE RECURRENCE [None]
  - RETINAL PIGMENT EPITHELIOPATHY [None]
  - RETINOBLASTOMA [None]
